FAERS Safety Report 23258490 (Version 1)
Quarter: 2023Q4

REPORT INFORMATION
  Report Type: Spontaneous
  Country: GB (occurrence: GB)
  Receive Date: 20231204
  Receipt Date: 20231204
  Transmission Date: 20240110
  Serious: Yes (Other)
  Sender: FDA-Public Use
  Company Number: GB-Accord-386068

PATIENT
  Age: 52 Year
  Sex: Female
  Weight: 72 kg

DRUGS (2)
  1. TERBINAFINE [Suspect]
     Active Substance: TERBINAFINE
     Indication: Onychomycosis
     Dosage: 250 MILLIGRAM (STRENGTH: 250 MG)
     Route: 048
     Dates: start: 20230824, end: 20230920
  2. DESOGESTREL [Concomitant]
     Active Substance: DESOGESTREL
     Dosage: 75 MICROGRAM
     Route: 048
     Dates: start: 201006

REACTIONS (9)
  - Haematochezia [Unknown]
  - Pain [Unknown]
  - Constipation [Unknown]
  - Dehydration [Unknown]
  - Dysgeusia [Not Recovered/Not Resolved]
  - Hypophagia [Not Recovered/Not Resolved]
  - Emotional distress [Not Recovered/Not Resolved]
  - Ageusia [Not Recovered/Not Resolved]
  - Weight decreased [Not Recovered/Not Resolved]

NARRATIVE: CASE EVENT DATE: 20230919
